FAERS Safety Report 20245114 (Version 1)
Quarter: 2021Q4

REPORT INFORMATION
  Report Type: Spontaneous
  Country: US (occurrence: US)
  Receive Date: 20211229
  Receipt Date: 20211229
  Transmission Date: 20220303
  Serious: No
  Sender: FDA-Public Use
  Company Number: US-CELLTRION INC.-2021US014898

PATIENT

DRUGS (1)
  1. TRUXIMA [Suspect]
     Active Substance: RITUXIMAB-ABBS
     Indication: Colon neoplasm
     Dosage: 10MG/ML (375 MG WEEKLY X 4)
     Dates: start: 20211027

REACTIONS (1)
  - Off label use [Unknown]
